FAERS Safety Report 9101025 (Version 2)
Quarter: 2013Q1

REPORT INFORMATION
  Report Type: Spontaneous
  Country: IL (occurrence: IL)
  Receive Date: 20130215
  Receipt Date: 20130322
  Transmission Date: 20140127
  Serious: Yes (Other)
  Sender: FDA-Public Use
  Company Number: IL-CELGENEUS-082-22393-13020743

PATIENT
  Sex: Male

DRUGS (2)
  1. ISTODAX [Suspect]
     Indication: PERIPHERAL T-CELL LYMPHOMA UNSPECIFIED
     Route: 065
  2. NEUPOGEN [Suspect]
     Indication: PRODUCT USED FOR UNKNOWN INDICATION
     Route: 065

REACTIONS (5)
  - Muscular weakness [Unknown]
  - Mouth haemorrhage [Unknown]
  - Thrombocytopenia [Unknown]
  - Feeling abnormal [Unknown]
  - Incorrect drug administration duration [Unknown]
